FAERS Safety Report 10686598 (Version 1)
Quarter: 2015Q1

REPORT INFORMATION
  Report Type: Report from Study
  Country: FR (occurrence: FR)
  Receive Date: 20150101
  Receipt Date: 20150101
  Transmission Date: 20150720
  Serious: Yes (Hospitalization)
  Sender: FDA-Public Use
  Company Number: FR-MERCK-1412FRA011403

PATIENT
  Age: 57 Year
  Sex: Male

DRUGS (11)
  1. ARACYTINE [Suspect]
     Active Substance: CYTARABINE
     Dosage: 1000 MG/M2, CYCLICAL, DAILY FROM DAY 1 TO DAY 4
     Route: 041
     Dates: start: 20080307, end: 20080310
  2. IMIPENEM AND CILASTATIN [Suspect]
     Active Substance: CILASTATIN SODIUM\IMIPENEM
     Dosage: 500 MG, TID
     Route: 042
     Dates: start: 20080403, end: 20080403
  3. DAUNORUBICIN [Suspect]
     Active Substance: DAUNORUBICIN
     Dosage: 60 MG/M2, CYCLICAL, DAILY ON DAY 1
     Route: 041
     Dates: start: 20080307, end: 20080307
  4. BACTRIM [Suspect]
     Active Substance: SULFAMETHOXAZOLE\TRIMETHOPRIM
     Dosage: 4 DF, TID
     Route: 041
     Dates: start: 20080328, end: 20080408
  5. EFFEXOR [Suspect]
     Active Substance: VENLAFAXINE HYDROCHLORIDE
     Dosage: 50 MG, BID
     Route: 048
     Dates: start: 20080405, end: 20080408
  6. MYLOTARG [Suspect]
     Active Substance: GEMTUZUMAB OZOGAMICIN
     Indication: ACUTE MYELOID LEUKAEMIA
     Dosage: 3 MG/M2, CYCLICAL, DAILY ON DAY1, DAY 4, DAY 7
     Route: 041
     Dates: start: 20080124, end: 20080130
  7. TAHOR [Suspect]
     Active Substance: ATORVASTATIN CALCIUM
     Dosage: 10 MG, QD
     Route: 048
     Dates: start: 20080331, end: 20080408
  8. ARACYTINE [Suspect]
     Active Substance: CYTARABINE
     Indication: ACUTE MYELOID LEUKAEMIA
     Dosage: 200 MG/M2, CYCLICAL, DAILY FROM DAY 1 TO DAY 7
     Route: 041
     Dates: start: 20080122, end: 20080125
  9. MYLOTARG [Suspect]
     Active Substance: GEMTUZUMAB OZOGAMICIN
     Dosage: 3 MG/M2, CYCLICAL, DAILY ON DAY1
     Route: 041
     Dates: start: 20080307, end: 20080307
  10. DAUNORUBICIN [Suspect]
     Active Substance: DAUNORUBICIN
     Indication: ACUTE MYELOID LEUKAEMIA
     Dosage: 60 MG/M2, CYCLICAL, DAILY FROM DAY 1 TO DAY 3
     Route: 041
     Dates: start: 20080124, end: 20080125
  11. EUPANTOL [Suspect]
     Active Substance: PANTOPRAZOLE SODIUM
     Dosage: 40 MG, QD
     Route: 048
     Dates: start: 20080331, end: 20080408

REACTIONS (1)
  - Hepatitis cholestatic [Recovered/Resolved]

NARRATIVE: CASE EVENT DATE: 20080406
